FAERS Safety Report 7887580-9 (Version None)
Quarter: 2011Q4

REPORT INFORMATION
  Report Type: 
  Country: None (occurrence: None)
  Receive Date: 20111103
  Receipt Date: 20111026
  Transmission Date: 20120403
  Serious: No
  Sender: FDA-Public Use
  Company Number: US-BIOGENIDEC-2011BI036886

PATIENT
  Sex: Female

DRUGS (1)
  1. TYSABRI [Suspect]
     Indication: CROHN'S DISEASE
     Route: 042
     Dates: start: 20081003

REACTIONS (5)
  - HERPES ZOSTER [None]
  - EYE INFECTION [None]
  - EYE INFLAMMATION [None]
  - EYE DISORDER [None]
  - NEURALGIA [None]
